FAERS Safety Report 16222662 (Version 1)
Quarter: 2019Q2

REPORT INFORMATION
  Report Type: Spontaneous
  Country: US (occurrence: US)
  Receive Date: 20190316
  Receipt Date: 20190316
  Transmission Date: 20190711
  Serious: No
  Sender: FDA-Public Use
  Company Number: None

PATIENT
  Age: 40 Year
  Weight: 100 kg

DRUGS (4)
  1. MERCAPTOPURINE. [Suspect]
     Active Substance: MERCAPTOPURINE
     Dates: end: 20190304
  2. METHOTREXATE. [Suspect]
     Active Substance: METHOTREXATE
     Dosage: ?          OTHER DOSE:12.5MG;?
     Dates: end: 20190301
  3. CYTARABINE. [Suspect]
     Active Substance: CYTARABINE
     Dates: end: 20190304
  4. CYCLOPHOSPHAMIDE. [Suspect]
     Active Substance: CYCLOPHOSPHAMIDE
     Dates: end: 20190301

REACTIONS (4)
  - Vomiting [None]
  - Therapy non-responder [None]
  - Nausea [None]
  - Headache [None]

NARRATIVE: CASE EVENT DATE: 20190304
